FAERS Safety Report 7916759-2 (Version None)
Quarter: 2011Q4

REPORT INFORMATION
  Report Type: 
  Country: None (occurrence: None)
  Receive Date: 20111116
  Receipt Date: 20111108
  Transmission Date: 20120403
  Serious: Yes (Death, Other)
  Sender: FDA-Public Use
  Company Number: NL-B.I. PHARMACEUTICALS,INC./RIDGEFIELD-2011-EU-00233GD

PATIENT

DRUGS (1)
  1. TIOTROPIUM [Suspect]
     Indication: CHRONIC OBSTRUCTIVE PULMONARY DISEASE
     Route: 055

REACTIONS (3)
  - DEATH [None]
  - CARDIOVASCULAR DISORDER [None]
  - CEREBROVASCULAR DISORDER [None]
